FAERS Safety Report 6216106-0 (Version None)
Quarter: 2009Q2

REPORT INFORMATION
  Report Type: 
  Country: None (occurrence: None)
  Receive Date: 20090603
  Receipt Date: 20090603
  Transmission Date: 20091009
  Serious: Yes (Disabling)
  Sender: FDA-Public Use
  Company Number: None

PATIENT
  Age: 73 Year
  Sex: Female
  Weight: 49.8957 kg

DRUGS (1)
  1. TERBINAFINE 250MGS-DR.REDDY'S [Suspect]
     Indication: ONYCHOMYCOSIS
     Dosage: 250MGS ONE TAB DAILY PO
     Route: 048
     Dates: start: 20090305, end: 20090412

REACTIONS (5)
  - AGEUSIA [None]
  - INFLUENZA LIKE ILLNESS [None]
  - JOINT SWELLING [None]
  - OEDEMA PERIPHERAL [None]
  - VISUAL ACUITY REDUCED [None]
